FAERS Safety Report 10094998 (Version 1)
Quarter: 2014Q2

REPORT INFORMATION
  Report Type: Spontaneous
  Country: US (occurrence: US)
  Receive Date: 20140422
  Receipt Date: 20140422
  Transmission Date: 20141212
  Serious: No
  Sender: FDA-Public Use
  Company Number: US-BAYER-2014-058415

PATIENT
  Age: 70 Year
  Sex: Male
  Weight: 97 kg

DRUGS (1)
  1. ALEVE TABLET [Suspect]
     Indication: ARTHRITIS
     Dosage: 1 DF, BID DAILY
     Route: 048
     Dates: start: 201401

REACTIONS (3)
  - Erectile dysfunction [Not Recovered/Not Resolved]
  - Incorrect drug administration duration [None]
  - Intentional product misuse [None]
